FAERS Safety Report 5992861-X (Version None)
Quarter: 2008Q4

REPORT INFORMATION
  Report Type: 
  Country: None (occurrence: None)
  Receive Date: 20081212
  Receipt Date: 20081202
  Transmission Date: 20090506
  Serious: Yes (Disabling)
  Sender: FDA-Public Use
  Company Number: AT-JNJFOC-20081102944

PATIENT
  Sex: Male
  Weight: 76 kg

DRUGS (4)
  1. REMICADE [Suspect]
     Dosage: 3RD INFUSION
     Route: 042
  2. REMICADE [Suspect]
     Indication: ANKYLOSING SPONDYLITIS
     Dosage: 2 INFUSIONS
     Route: 042
  3. METHOTREXATE [Concomitant]
     Indication: ARTHRITIS
  4. CELECOXIB [Concomitant]
     Route: 048

REACTIONS (3)
  - GASTROINTESTINAL DISORDER [None]
  - JOINT SWELLING [None]
  - SERUM SICKNESS [None]
